FAERS Safety Report 10374626 (Version 2)
Quarter: 2014Q3

REPORT INFORMATION
  Report Type: Spontaneous
  Country: US (occurrence: US)
  Receive Date: 20140811
  Receipt Date: 20140811
  Transmission Date: 20150326
  Serious: Yes (Other)
  Sender: FDA-Public Use
  Company Number: US-TEVA-462301USA

PATIENT
  Age: 64 Year
  Sex: Female

DRUGS (1)
  1. METOCLOPRAMIDE. [Suspect]
     Active Substance: METOCLOPRAMIDE
     Indication: GASTROOESOPHAGEAL REFLUX DISEASE
     Dosage: 20 MILLIGRAM DAILY;
     Dates: start: 20130213

REACTIONS (7)
  - Depressed level of consciousness [Unknown]
  - Parkinsonism [Unknown]
  - Fine motor delay [Unknown]
  - Asthenia [Unknown]
  - Balance disorder [Unknown]
  - Motor dysfunction [Unknown]
  - Asthenia [Unknown]

NARRATIVE: CASE EVENT DATE: 201307
